FAERS Safety Report 9989316 (Version 2)
Quarter: 2014Q1

REPORT INFORMATION
  Report Type: Spontaneous
  Country: US (occurrence: FR)
  Receive Date: 20140310
  Receipt Date: 20140328
  Transmission Date: 20141002
  Serious: Yes (Hospitalization, Congenital Anomaly, Other)
  Sender: FDA-Public Use
  Company Number: US-SA-2014SA030211

PATIENT
  Sex: Female
  Weight: 2.2 kg

DRUGS (9)
  1. APROVEL [Suspect]
     Indication: PRODUCT USED FOR UNKNOWN INDICATION
     Route: 064
     Dates: end: 201203
  2. SIROLIMUS [Suspect]
     Indication: IMMUNOSUPPRESSANT DRUG THERAPY
     Route: 064
     Dates: start: 20100222, end: 20120314
  3. CELLCEPT [Suspect]
     Indication: IMMUNOSUPPRESSANT DRUG THERAPY
     Route: 064
     Dates: start: 20091219, end: 20120325
  4. PROGRAF [Suspect]
     Indication: PRODUCT USED FOR UNKNOWN INDICATION
     Route: 064
  5. IMUREL [Suspect]
     Indication: PRODUCT USED FOR UNKNOWN INDICATION
     Route: 064
  6. SECTRAL [Suspect]
     Indication: PRODUCT USED FOR UNKNOWN INDICATION
     Route: 064
  7. OMEPRAZOLE [Concomitant]
  8. CORTANCYL [Concomitant]
  9. ASPEGIC [Concomitant]

REACTIONS (3)
  - Heart disease congenital [Recovering/Resolving]
  - Maternal exposure during pregnancy [Unknown]
  - Pulmonary artery atresia [Unknown]
